FAERS Safety Report 4978153-6 (Version None)
Quarter: 2006Q2

REPORT INFORMATION
  Report Type: 
  Country: None (occurrence: None)
  Receive Date: 20060417
  Receipt Date: 20060403
  Transmission Date: 20061013
  Serious: Yes (Death, Hospitalization)
  Sender: FDA-Public Use
  Company Number: 145202USA

PATIENT
  Age: 63 Year
  Sex: Male
  Weight: 77.1115 kg

DRUGS (2)
  1. COPAXONE [Suspect]
     Indication: MULTIPLE SCLEROSIS
     Dates: start: 19991101, end: 20051007
  2. BETASERON [Suspect]
     Indication: MULTIPLE SCLEROSIS
     Dates: start: 19990914, end: 19991114

REACTIONS (4)
  - COLON CANCER RECURRENT [None]
  - FUNGAL INFECTION [None]
  - GALLBLADDER OPERATION [None]
  - SEPSIS [None]
